FAERS Safety Report 7499423-6 (Version None)
Quarter: 2011Q2

REPORT INFORMATION
  Report Type: 
  Country: None (occurrence: None)
  Receive Date: 20110524
  Receipt Date: 20110511
  Transmission Date: 20111010
  Serious: No
  Sender: FDA-Public Use
  Company Number: PHHY2011IL40280

PATIENT
  Sex: Female

DRUGS (1)
  1. TASIGNA [Suspect]
     Indication: CHRONIC MYELOID LEUKAEMIA
     Dosage: 600 MG DAILY
     Route: 048
     Dates: start: 20110105

REACTIONS (4)
  - VOMITING [None]
  - PAIN IN EXTREMITY [None]
  - NAUSEA [None]
  - DRUG ADMINISTERED TO PATIENT OF INAPPROPRIATE AGE [None]
